FAERS Safety Report 9332670 (Version 1)
Quarter: 2013Q2

REPORT INFORMATION
  Report Type: Spontaneous
  Country: SE (occurrence: SE)
  Receive Date: 20130606
  Receipt Date: 20130606
  Transmission Date: 20140414
  Serious: Yes (Death, Hospitalization)
  Sender: FDA-Public Use
  Company Number: SE-PERRIGO-13SE005814

PATIENT
  Age: 45 Year
  Sex: Female

DRUGS (1)
  1. ACETAMINOPHEN 650MG ER 544 [Suspect]
     Indication: PRODUCT USED FOR UNKNOWN INDICATION
     Dosage: 190 GRAMS, UNKNOWN
     Route: 065

REACTIONS (9)
  - Overdose [Fatal]
  - Circulatory collapse [Fatal]
  - Multi-organ failure [Fatal]
  - Toxicity to various agents [Fatal]
  - Coma [Unknown]
  - Hypotension [Fatal]
  - Hypothermia [Unknown]
  - Metabolic acidosis [Unknown]
  - Methaemoglobinaemia [Recovering/Resolving]
